FAERS Safety Report 9415548 (Version 1)
Quarter: 2013Q3

REPORT INFORMATION
  Report Type: Spontaneous
  Country: CA (occurrence: CA)
  Receive Date: 20130723
  Receipt Date: 20130723
  Transmission Date: 20140515
  Serious: Yes (Other)
  Sender: FDA-Public Use
  Company Number: CA-ROCHE-1249520

PATIENT
  Age: 50 Year
  Sex: Female

DRUGS (9)
  1. CELLCEPT [Suspect]
     Indication: PRODUCT USED FOR UNKNOWN INDICATION
     Route: 065
  2. PREDNISONE [Suspect]
     Indication: PRODUCT USED FOR UNKNOWN INDICATION
     Route: 065
  3. PREDNISONE [Suspect]
     Route: 065
  4. PREDNISONE [Suspect]
     Route: 065
  5. PREDNISONE [Suspect]
     Route: 065
  6. TACROLIMUS [Suspect]
     Indication: PRODUCT USED FOR UNKNOWN INDICATION
     Route: 065
  7. RAPAMUNE [Suspect]
     Indication: PRODUCT USED FOR UNKNOWN INDICATION
     Route: 065
  8. PROGRAF [Suspect]
     Indication: PRODUCT USED FOR UNKNOWN INDICATION
     Dosage: TAKEN FOR 1 MONTH
     Route: 065
  9. ENALAPRIL [Concomitant]
     Route: 065

REACTIONS (13)
  - Bowen^s disease [Unknown]
  - Squamous cell carcinoma [Unknown]
  - Blood creatinine increased [Unknown]
  - Blood pressure increased [Unknown]
  - Musculoskeletal stiffness [Unknown]
  - Rectal cancer [Unknown]
  - Renal impairment [Unknown]
  - Skin tightness [Unknown]
  - Anorectal disorder [Unknown]
  - Condition aggravated [Unknown]
  - Scleroderma renal crisis [Unknown]
  - Systemic sclerosis [Unknown]
  - Malignant anorectal neoplasm [Unknown]
